FAERS Safety Report 8831705 (Version 6)
Quarter: 2018Q2

REPORT INFORMATION
  Report Type: Spontaneous
  Country: US (occurrence: US)
  Receive Date: 20121009
  Receipt Date: 20180424
  Transmission Date: 20180711
  Serious: Yes (Hospitalization, Other)
  Sender: FDA-Public Use
  Company Number: US-009507513-1202USA02275

PATIENT
  Sex: Female

DRUGS (10)
  1. FOSAMAX [Suspect]
     Active Substance: ALENDRONATE SODIUM
     Indication: OSTEOPENIA
     Dosage: UNK
  2. FOSAMAX [Suspect]
     Active Substance: ALENDRONATE SODIUM
     Indication: OSTEOPENIA
  3. FOSAMAX [Suspect]
     Active Substance: ALENDRONATE SODIUM
     Indication: OSTEOPOROSIS
     Dosage: 70 MG, QW
     Route: 048
     Dates: start: 20010802, end: 2009
  4. FOSAMAX PLUS D [Suspect]
     Active Substance: ALENDRONATE SODIUM\CHOLECALCIFEROL
     Indication: OSTEOPOROSIS
     Dosage: 70 MG, PLUS D 2800
     Route: 048
  5. FOSAMAX PLUS D [Suspect]
     Active Substance: ALENDRONATE SODIUM\CHOLECALCIFEROL
     Indication: OSTEOPENIA
  6. FOSAMAX [Suspect]
     Active Substance: ALENDRONATE SODIUM
     Indication: OSTEOPOROSIS
     Dosage: 5 MG, QD
     Route: 048
     Dates: start: 1995, end: 200012
  7. FOSAMAX [Suspect]
     Active Substance: ALENDRONATE SODIUM
     Indication: OSTEOPOROSIS
     Dosage: 10 MG, QD
     Route: 048
     Dates: start: 20001229, end: 200107
  8. ALENDRONATE SODIUM. [Suspect]
     Active Substance: ALENDRONATE SODIUM
     Indication: OSTEOPENIA
  9. FOSAMAX [Suspect]
     Active Substance: ALENDRONATE SODIUM
     Indication: OSTEOPENIA
  10. ALENDRONATE SODIUM. [Suspect]
     Active Substance: ALENDRONATE SODIUM
     Indication: OSTEOPOROSIS
     Dosage: 70 MG, QW
     Route: 048
     Dates: start: 20090827

REACTIONS (21)
  - Renal tubular necrosis [Unknown]
  - Periodontal operation [Unknown]
  - Bone graft [Unknown]
  - Hypertension [Unknown]
  - Anxiety [Not Recovered/Not Resolved]
  - Depression [Not Recovered/Not Resolved]
  - Breath sounds abnormal [Unknown]
  - Femur fracture [Unknown]
  - Open reduction of fracture [Unknown]
  - Haemoglobin decreased [Unknown]
  - Intramedullary rod insertion [Unknown]
  - Oral surgery [Unknown]
  - Femur fracture [Unknown]
  - Hip fracture [Unknown]
  - Intramedullary rod insertion [Unknown]
  - Device failure [Unknown]
  - Fracture nonunion [Unknown]
  - Hypercholesterolaemia [Unknown]
  - Periprosthetic fracture [Unknown]
  - Open reduction of fracture [Unknown]
  - Wound drainage [Recovering/Resolving]

NARRATIVE: CASE EVENT DATE: 2000
